FAERS Safety Report 6078000-8 (Version None)
Quarter: 2009Q1

REPORT INFORMATION
  Report Type: 
  Country: None (occurrence: None)
  Receive Date: 20090213
  Receipt Date: 20090211
  Transmission Date: 20090719
  Serious: Yes (Hospitalization)
  Sender: FDA-Public Use
  Company Number: AU-ASTRAZENECA-2008AP05539

PATIENT
  Age: 29607 Day
  Sex: Female

DRUGS (7)
  1. AZD2171 [Suspect]
     Indication: BREAST CANCER METASTATIC
     Route: 048
     Dates: start: 20080311
  2. FASLODEX [Suspect]
     Indication: BREAST CANCER METASTATIC
     Route: 030
     Dates: start: 20080311
  3. AMLODIPINE [Concomitant]
     Route: 048
     Dates: start: 20080327
  4. ZOMETA [Concomitant]
     Indication: FRACTURE
     Dates: start: 20080311
  5. MAXALON [Concomitant]
     Indication: NAUSEA
     Route: 048
     Dates: start: 20080311
  6. ASPIRIN [Concomitant]
     Route: 048
  7. TRIMETHOPRIM [Concomitant]
     Indication: URINARY TRACT INFECTION
     Route: 048
     Dates: start: 20080716

REACTIONS (1)
  - DEHYDRATION [None]
